FAERS Safety Report 15361688 (Version 4)
Quarter: 2018Q4

REPORT INFORMATION
  Report Type: Spontaneous
  Country: EG (occurrence: EG)
  Receive Date: 20180907
  Receipt Date: 20181026
  Transmission Date: 20190204
  Serious: Yes (Death, Life-Threatening, Hospitalization)
  Sender: FDA-Public Use
  Company Number: PHHY2018EG090750

PATIENT
  Age: 8 Year
  Sex: Female

DRUGS (1)
  1. CEFTRIAXONE SANDOZ [Suspect]
     Active Substance: CEFTRIAXONE
     Indication: ABDOMINAL PAIN
     Dosage: UNK
     Route: 065

REACTIONS (7)
  - Chills [Unknown]
  - Vomiting [Unknown]
  - Hypersensitivity [Unknown]
  - Skin discolouration [Unknown]
  - Dysstasia [Unknown]
  - Death [Fatal]
  - Fall [Unknown]
